FAERS Safety Report 18769484 (Version 2)
Quarter: 2021Q1

REPORT INFORMATION
  Report Type: Spontaneous
  Country: DE (occurrence: DE)
  Receive Date: 20210121
  Receipt Date: 20210121
  Transmission Date: 20210419
  Serious: Yes (Other)
  Sender: FDA-Public Use
  Company Number: DE-PFIZER INC-2021019264

PATIENT
  Age: 36 Year
  Sex: Female

DRUGS (1)
  1. RITUXIMAB. [Suspect]
     Active Substance: RITUXIMAB
     Indication: RHEUMATOID ARTHRITIS
     Dosage: UNK

REACTIONS (5)
  - Respiratory tract infection [Unknown]
  - Staphylococcal infection [Unknown]
  - Hypogammaglobulinaemia [Unknown]
  - Lymphadenopathy [Unknown]
  - Secondary immunodeficiency [Unknown]
